FAERS Safety Report 20987232 (Version 1)
Quarter: 2022Q2

REPORT INFORMATION
  Report Type: Spontaneous
  Country: US (occurrence: None)
  Receive Date: 20220619
  Receipt Date: 20220619
  Transmission Date: 20220721
  Serious: Yes (Other)
  Sender: FDA-Public Use
  Company Number: None

PATIENT
  Age: 37 Year
  Sex: Female
  Weight: 56.25 kg

DRUGS (7)
  1. DEXTROAMPHET SACCHARAT, AMPHET ASPARTATE, DEXTROAMPHET SULFATE AND AMP [Suspect]
     Active Substance: AMPHETAMINE ASPARTATE\AMPHETAMINE SULFATE\DEXTROAMPHETAMINE SACCHARATE\DEXTROAMPHETAMINE SULFATE
     Indication: Somnolence
     Dates: start: 20220430
  2. TOPAMAX [Concomitant]
     Active Substance: TOPIRAMATE
  3. VITAMINS [Concomitant]
     Active Substance: VITAMINS
  4. XYZAL [Concomitant]
     Active Substance: LEVOCETIRIZINE DIHYDROCHLORIDE
  5. STOOL SOFTENER (DOCUSATE) [Concomitant]
     Active Substance: DOCUSATE
  6. MIRALAX [Concomitant]
     Active Substance: POLYETHYLENE GLYCOL 3350
  7. PEPCID [Concomitant]
     Active Substance: FAMOTIDINE

REACTIONS (6)
  - Headache [None]
  - Constipation [None]
  - Abdominal pain [None]
  - Nausea [None]
  - Frustration tolerance decreased [None]
  - Drug tolerance increased [None]

NARRATIVE: CASE EVENT DATE: 20220501
